FAERS Safety Report 6889176-4 (Version None)
Quarter: 2010Q3

REPORT INFORMATION
  Report Type: 
  Country: None (occurrence: None)
  Receive Date: 20100730
  Receipt Date: 20080117
  Transmission Date: 20110219
  Serious: No
  Sender: FDA-Public Use
  Company Number: US-PFIZER INC-2008007086

PATIENT
  Sex: Female
  Weight: 56.818 kg

DRUGS (4)
  1. LIPITOR [Suspect]
     Indication: BLOOD CHOLESTEROL INCREASED
  2. METFORMIN HCL [Concomitant]
  3. COZAAR [Concomitant]
  4. CENTRUM SILVER [Concomitant]

REACTIONS (4)
  - BACK PAIN [None]
  - BONE PAIN [None]
  - MYALGIA [None]
  - PAIN IN EXTREMITY [None]
